FAERS Safety Report 10736553 (Version 1)
Quarter: 2015Q1

REPORT INFORMATION
  Report Type: Spontaneous
  Country: US (occurrence: None)
  Receive Date: 20150122
  Receipt Date: 20150122
  Transmission Date: 20150721
  Serious: Yes (Other)
  Sender: FDA-Public Use
  Company Number: None

PATIENT
  Age: 60 Year
  Sex: Female
  Weight: 63.5 kg

DRUGS (1)
  1. INVOKAMET [Suspect]
     Active Substance: CANAGLIFLOZIN\METFORMIN HYDROCHLORIDE
     Indication: PRODUCT USED FOR UNKNOWN INDICATION
     Dosage: 1 PILL 2X/DAY
     Route: 048
     Dates: start: 20141219, end: 20150112

REACTIONS (7)
  - Product packaging issue [None]
  - Urinary tract infection [None]
  - Abasia [None]
  - Blood glucose increased [None]
  - Vaginal ulceration [None]
  - Urethral ulcer [None]
  - Anal ulcer [None]

NARRATIVE: CASE EVENT DATE: 20150119
